FAERS Safety Report 22124161 (Version 6)
Quarter: 2025Q2

REPORT INFORMATION
  Report Type: Spontaneous
  Country: NL (occurrence: NL)
  Receive Date: 20230322
  Receipt Date: 20250606
  Transmission Date: 20250716
  Serious: Yes (Hospitalization, Other)
  Sender: OTSUKA
  Company Number: NL-OTSUKA-2023_006845

PATIENT
  Age: 9 Year
  Sex: Male

DRUGS (7)
  1. ARIPIPRAZOLE [Suspect]
     Active Substance: ARIPIPRAZOLE
     Indication: Autism spectrum disorder
     Dosage: 2 MG, DAILY (2 MILLIGRAM, 1/DAY)
     Route: 048
     Dates: start: 20230202, end: 20230227
  2. CRIZOTINIB [Suspect]
     Active Substance: CRIZOTINIB
     Indication: Malignant melanoma
     Dosage: 600 MG, DAILY (600 MILLIGRAM, 1/DAY)
     Route: 048
     Dates: start: 20230211, end: 20230226
  3. CRIZOTINIB [Suspect]
     Active Substance: CRIZOTINIB
     Route: 048
     Dates: start: 20230306
  4. METOCLOPRAMIDE [Suspect]
     Active Substance: METOCLOPRAMIDE
     Indication: Nausea
     Dosage: 12 MG, DAILY (12 MILLIGRAM, 1/DAY)
     Route: 048
     Dates: start: 20230207, end: 20230227
  5. OXYBUTYNIN [Suspect]
     Active Substance: OXYBUTYNIN
     Indication: Pain
     Dosage: 12.8 MG, DAILY (12.8 MILLIGRAM, 1/DAY)
     Route: 048
     Dates: start: 20230219, end: 20230227
  6. ACETAMINOPHEN [Suspect]
     Active Substance: ACETAMINOPHEN
     Indication: Pain
     Dosage: 1500 MG, DAILY (1500 MILLIGRAM, 1/DAY)
     Route: 048
     Dates: start: 20230215, end: 20230227
  7. TRAMADOL [Suspect]
     Active Substance: TRAMADOL
     Indication: Pain
     Dosage: 90 MG, DAILY (90 MILLIGRAM, 1/DAY)
     Route: 048
     Dates: start: 20230217, end: 20230227

REACTIONS (6)
  - Abdominal pain [Unknown]
  - Vomiting [Recovered/Resolved]
  - Nausea [Not Recovered/Not Resolved]
  - Lipase increased [Recovered/Resolved]
  - Amylase increased [Recovered/Resolved]
  - Product use in unapproved indication [Unknown]

NARRATIVE: CASE EVENT DATE: 20230201
